FAERS Safety Report 4576832-6 (Version None)
Quarter: 2005Q1

REPORT INFORMATION
  Report Type: 
  Country: None (occurrence: None)
  Receive Date: 20050207
  Receipt Date: 20050202
  Transmission Date: 20050727
  Serious: Yes (Hospitalization)
  Sender: FDA-Public Use
  Company Number: USA-2004-0014662

PATIENT
  Age: 71 Year
  Sex: Female
  Weight: 63.5 kg

DRUGS (1)
  1. OXYCONTIN [Suspect]
     Indication: PAIN
     Dosage: 5 MG, ORAL
     Route: 048

REACTIONS (4)
  - DRUG DEPENDENCE [None]
  - DRUG WITHDRAWAL SYNDROME [None]
  - MALAISE [None]
  - SMALL INTESTINAL OBSTRUCTION [None]
